FAERS Safety Report 9006700 (Version 2)
Quarter: 2013Q1

REPORT INFORMATION
  Report Type: Spontaneous
  Country: US (occurrence: US)
  Receive Date: 20130110
  Receipt Date: 20130124
  Transmission Date: 20140127
  Serious: Yes (Hospitalization)
  Sender: FDA-Public Use
  Company Number: US-ROCHE-1175896

PATIENT
  Age: 40 Year
  Sex: Female

DRUGS (1)
  1. T-PA [Suspect]
     Indication: RETINAL HAEMORRHAGE
     Route: 031

REACTIONS (1)
  - Retinal detachment [Recovered/Resolved]
